FAERS Safety Report 16502905 (Version 1)
Quarter: 2019Q3

REPORT INFORMATION
  Report Type: Spontaneous
  Country: US (occurrence: US)
  Receive Date: 20190701
  Receipt Date: 20190701
  Transmission Date: 20191004
  Serious: No
  Sender: FDA-Public Use
  Company Number: US-AMAG PHARMACEUTICALS, INC.-AMAG201903385

PATIENT
  Age: 68 Year
  Sex: Female
  Weight: 51.76 kg

DRUGS (3)
  1. INTRAROSA [Suspect]
     Active Substance: PRASTERONE
     Indication: DYSPAREUNIA
     Dosage: 6.5MG,DAILY
     Route: 067
     Dates: start: 20190329
  2. CLOBETASOL [Concomitant]
     Active Substance: CLOBETASOL
     Indication: LICHEN SCLEROSUS
     Route: 061
  3. ESTROGEN CREAM [Concomitant]
     Indication: LICHEN SCLEROSUS
     Dosage: 1MG, 3 TIMES A WEEK
     Route: 061

REACTIONS (1)
  - Product administration error [Unknown]

NARRATIVE: CASE EVENT DATE: 20190329
